FAERS Safety Report 4687319-4 (Version None)
Quarter: 2005Q2

REPORT INFORMATION
  Report Type: 
  Country: None (occurrence: None)
  Receive Date: 20050608
  Receipt Date: 20050527
  Transmission Date: 20051028
  Serious: Yes (Hospitalization, Other)
  Sender: FDA-Public Use
  Company Number: USA-2005-0020496

PATIENT
  Age: 38 Year
  Sex: Male
  Weight: 65.8 kg

DRUGS (9)
  1. OXYCODONE HYDROCHLORIDE (SIMILAR TO NDA 20-553)(OXYCODONE HYDROCHLORDE [Suspect]
     Dosage: 10 MG,
  2. COCAINE (COCAINE0 [Suspect]
  3. ALCOHOL (ETHANOL) [Suspect]
  4. BENZODIAZEPINE [Suspect]
  5. LORCET-HD [Concomitant]
  6. MOTRIN [Concomitant]
  7. YYLENOL [Concomitant]
  8. ATIVAN [Concomitant]
  9. AMBIEN [Concomitant]

REACTIONS (6)
  - DEPRESSION [None]
  - DRUG SCREEN POSITIVE [None]
  - HEADACHE [None]
  - PAIN IN EXTREMITY [None]
  - POLYSUBSTANCE ABUSE [None]
  - SUICIDAL IDEATION [None]
